FAERS Safety Report 9425353 (Version 2)
Quarter: 2013Q3

REPORT INFORMATION
  Report Type: Spontaneous
  Country: US (occurrence: US)
  Receive Date: 20130729
  Receipt Date: 20130813
  Transmission Date: 20140515
  Serious: Yes (Hospitalization)
  Sender: FDA-Public Use
  Company Number: US-BRISTOL-MYERS SQUIBB COMPANY-19145176

PATIENT
  Age: 23 Year
  Sex: Male

DRUGS (7)
  1. ABILIFY [Suspect]
     Indication: BIPOLAR DISORDER
     Dosage: DOSE INCREASED TO 15MG FROM 13JUN13
     Route: 048
     Dates: start: 201303
  2. ABILIFY [Suspect]
     Indication: SCHIZOAFFECTIVE DISORDER
     Dosage: DOSE INCREASED TO 15MG FROM 13JUN13
     Route: 048
     Dates: start: 201303
  3. ABILIFY MAINTENA INJECTION [Suspect]
     Indication: SCHIZOAFFECTIVE DISORDER
     Route: 030
     Dates: start: 20130612
  4. ABILIFY MAINTENA INJECTION [Suspect]
     Indication: BIPOLAR I DISORDER
     Route: 030
     Dates: start: 20130612
  5. AMBIEN [Concomitant]
  6. DEPAKOTE ER [Concomitant]
  7. SEROQUEL [Concomitant]

REACTIONS (2)
  - Bipolar I disorder [Not Recovered/Not Resolved]
  - Schizoaffective disorder [Not Recovered/Not Resolved]
